FAERS Safety Report 4635177-6 (Version None)
Quarter: 2005Q2

REPORT INFORMATION
  Report Type: 
  Country: None (occurrence: None)
  Receive Date: 20050414
  Receipt Date: 20050413
  Transmission Date: 20051028
  Serious: Yes (Hospitalization)
  Sender: FDA-Public Use
  Company Number: DE-GLAXOSMITHKLINE-D0046357A

PATIENT
  Age: 81 Year
  Sex: Female
  Weight: 65 kg

DRUGS (8)
  1. LAMICTAL [Suspect]
     Indication: CONVULSION
     Dosage: 25MG PER DAY
     Route: 048
     Dates: start: 20050312, end: 20050312
  2. MADOPAR [Suspect]
     Indication: PARKINSON'S DISEASE
     Dosage: 500MG PER DAY
     Route: 048
  3. MADOPAR DEPOT [Suspect]
     Indication: PARKINSON'S DISEASE
     Dosage: 125MG AT NIGHT
     Route: 048
  4. SEROQUEL [Concomitant]
     Route: 048
  5. ASPIRIN [Concomitant]
     Dosage: 100MG PER DAY
     Route: 048
  6. METOPROLOL SUCCINATE [Concomitant]
     Dosage: 47.5MG PER DAY
     Route: 048
  7. LASIX [Concomitant]
     Dosage: 40MG PER DAY
     Route: 048
  8. HEPARIN [Concomitant]
     Dosage: 7500IU TWICE PER DAY
     Route: 065

REACTIONS (4)
  - AGGRESSION [None]
  - DISORIENTATION [None]
  - HALLUCINATION [None]
  - RESTLESSNESS [None]
